FAERS Safety Report 9771947 (Version 3)
Quarter: 2014Q2

REPORT INFORMATION
  Report Type: Report from Study
  Country: CA (occurrence: CA)
  Receive Date: 20131219
  Receipt Date: 20140612
  Transmission Date: 20141212
  Serious: Yes (Other)
  Sender: FDA-Public Use
  Company Number: CA-JNJFOC-20131209042

PATIENT
  Age: 20 Year
  Sex: Male
  Weight: 59 kg

DRUGS (9)
  1. REMICADE [Suspect]
     Indication: CROHN^S DISEASE
     Dosage: INDUCTION AT WEEK 0, 2, 6 AND THEN EVERY 8 WEEKS
     Route: 042
     Dates: start: 20130905
  2. REMICADE [Suspect]
     Indication: CROHN^S DISEASE
     Route: 042
  3. CORTISONE [Concomitant]
     Route: 065
     Dates: start: 201307, end: 20130919
  4. IRON [Concomitant]
     Route: 048
     Dates: start: 201303
  5. CALCIUM [Concomitant]
     Route: 048
     Dates: start: 201307
  6. PURINETHOL [Concomitant]
     Route: 048
     Dates: start: 201307
  7. MORPHINE [Concomitant]
     Route: 048
     Dates: start: 201307
  8. MORPHINE [Concomitant]
     Dosage: 5-10 MG EVERY 4-6 HOURS AS NEEDED
     Route: 048
  9. TYLENOL [Concomitant]
     Route: 048

REACTIONS (3)
  - Intestinal operation [Unknown]
  - Abdominal pain [Unknown]
  - Haematochezia [Unknown]
